FAERS Safety Report 10396848 (Version 7)
Quarter: 2017Q3

REPORT INFORMATION
  Report Type: Report from Study
  Country: JP (occurrence: JP)
  Receive Date: 20140820
  Receipt Date: 20170822
  Transmission Date: 20171127
  Serious: Yes (Hospitalization)
  Sender: FDA-Public Use
  Company Number: JP-PFIZER INC-2014230705

PATIENT
  Age: 72 Year
  Sex: Male
  Weight: 72 kg

DRUGS (12)
  1. PREDNISOLONE. [Suspect]
     Active Substance: PREDNISOLONE
     Dosage: 8 MG, DAILY
     Route: 048
     Dates: start: 20131106, end: 20140304
  2. BARACLUDE [Concomitant]
     Active Substance: ENTECAVIR
     Dosage: UNK
     Route: 048
     Dates: start: 20140702
  3. XELJANZ [Suspect]
     Active Substance: TOFACITINIB CITRATE
     Indication: RHEUMATOID ARTHRITIS
     Dosage: 5 MG, DAILY
     Route: 048
     Dates: start: 20140219, end: 20140529
  4. PREDNISOLONE. [Suspect]
     Active Substance: PREDNISOLONE
     Dosage: 7 MG, DAILY
     Route: 048
     Dates: start: 20140305, end: 20140318
  5. ETIZOLAM [Concomitant]
     Active Substance: ETIZOLAM
     Dosage: UNK
  6. SENNOSIDES. [Concomitant]
     Active Substance: SENNOSIDES
     Dosage: UNK
  7. PREDNISOLONE. [Suspect]
     Active Substance: PREDNISOLONE
     Dosage: 6 MG, DAILY
     Route: 048
     Dates: start: 20140319, end: 20150121
  8. PREDNISOLONE. [Suspect]
     Active Substance: PREDNISOLONE
     Dosage: 5 MG, DAILY
     Route: 048
     Dates: start: 20150122
  9. CELECOX [Concomitant]
     Active Substance: CELECOXIB
     Dosage: UNK
     Route: 048
     Dates: start: 20140108
  10. EDIROL [Concomitant]
     Active Substance: ELDECALCITOL
     Dosage: UNK
  11. TOFISOPAM [Concomitant]
     Active Substance: TOFISOPAM
     Dosage: UNK
  12. BROTIZOLAM [Concomitant]
     Active Substance: BROTIZOLAM
     Dosage: UNK

REACTIONS (2)
  - Angina pectoris [Recovering/Resolving]
  - Diverticulitis [Recovered/Resolved]

NARRATIVE: CASE EVENT DATE: 20140529
